FAERS Safety Report 8511308-2 (Version None)
Quarter: 2012Q3

REPORT INFORMATION
  Report Type: 
  Country: None (occurrence: None)
  Receive Date: 20120716
  Receipt Date: 20120704
  Transmission Date: 20120928
  Serious: Yes (Other)
  Sender: FDA-Public Use
  Company Number: FR-BRISTOL-MYERS SQUIBB COMPANY-16597593

PATIENT
  Age: 65 Year
  Sex: Female
  Weight: 60 kg

DRUGS (2)
  1. SPRYCEL [Suspect]
     Indication: CHRONIC MYELOID LEUKAEMIA
     Dates: start: 20090101, end: 20120501
  2. CRESTOR [Suspect]
     Indication: HYPERCHOLESTEROLAEMIA
     Dates: end: 20120401

REACTIONS (4)
  - HYPERTENSIVE CRISIS [None]
  - CEREBROVASCULAR ACCIDENT [None]
  - BLOOD CHOLESTEROL INCREASED [None]
  - AXONAL NEUROPATHY [None]
